FAERS Safety Report 15579378 (Version 2)
Quarter: 2018Q4

REPORT INFORMATION
  Report Type: Spontaneous
  Country: BR (occurrence: BR)
  Receive Date: 20181102
  Receipt Date: 20181113
  Transmission Date: 20190205
  Serious: Yes (Other)
  Sender: FDA-Public Use
  Company Number: BR-PFIZER INC-2018444598

PATIENT
  Age: 91 Year
  Sex: Female

DRUGS (3)
  1. LORAX [Suspect]
     Active Substance: LORAZEPAM
     Indication: INSOMNIA
  2. CAPTOPRIL. [Concomitant]
     Active Substance: CAPTOPRIL
     Dosage: UNK
  3. LORAX [Suspect]
     Active Substance: LORAZEPAM
     Indication: RELAXATION THERAPY
     Dosage: 2 MG, 2X/DAY
     Dates: start: 1983

REACTIONS (2)
  - Dementia [Not Recovered/Not Resolved]
  - Product use in unapproved indication [Unknown]

NARRATIVE: CASE EVENT DATE: 1983
